FAERS Safety Report 10683689 (Version 2)
Quarter: 2017Q1

REPORT INFORMATION
  Report Type: Spontaneous
  Country: FR (occurrence: FR)
  Receive Date: 20141230
  Receipt Date: 20170322
  Transmission Date: 20170428
  Serious: Yes (Congenital Anomaly, Other)
  Sender: FDA-Public Use
  Company Number: FR-ABBVIE-14P-056-1326986-00

PATIENT

DRUGS (4)
  1. LAMICTAL [Suspect]
     Active Substance: LAMOTRIGINE
     Indication: MATERNAL EXPOSURE TIMING UNSPECIFIED
     Route: 064
  2. URBANYL (CLOBAZAM) [Suspect]
     Active Substance: CLOBAZAM
     Indication: MATERNAL EXPOSURE TIMING UNSPECIFIED
     Route: 064
  3. SPECIAFOLDINE (FOLIC ACID) [Suspect]
     Active Substance: FOLIC ACID
     Indication: MATERNAL EXPOSURE TIMING UNSPECIFIED
     Route: 064
  4. DEPAKINE [Suspect]
     Active Substance: VALPROATE SODIUM
     Indication: MATERNAL EXPOSURE TIMING UNSPECIFIED
     Route: 064

REACTIONS (7)
  - Glossoptosis [Unknown]
  - Retrognathia [Unknown]
  - Cerebral ventricle dilatation [Unknown]
  - Foetal exposure during pregnancy [Unknown]
  - Congenital central nervous system anomaly [Unknown]
  - Pierre Robin syndrome [Unknown]
  - Cleft palate [Unknown]

NARRATIVE: CASE EVENT DATE: 201410
